FAERS Safety Report 14101720 (Version 1)
Quarter: 2017Q4

REPORT INFORMATION
  Report Type: Spontaneous
  Country: US (occurrence: US)
  Receive Date: 20171018
  Receipt Date: 20171018
  Transmission Date: 20180321
  Serious: Yes (Hospitalization, Disabling)
  Sender: FDA-Public Use
  Company Number: US-FRESENIUS KABI-FK201708742

PATIENT
  Age: 48 Year
  Sex: Male

DRUGS (2)
  1. BUPIVACAINE (MANUFACTURER UNKNOWN) [Suspect]
     Active Substance: BUPIVACAINE
     Indication: EPIDURAL ANALGESIA
     Route: 008
  2. BETAMETHASONE. [Suspect]
     Active Substance: BETAMETHASONE
     Indication: EPIDURAL ANALGESIA
     Route: 008

REACTIONS (3)
  - Hypertension [Recovered/Resolved with Sequelae]
  - Spinal cord ischaemia [Recovered/Resolved with Sequelae]
  - Paraparesis [Not Recovered/Not Resolved]
